FAERS Safety Report 6712892-1 (Version None)
Quarter: 2010Q2

REPORT INFORMATION
  Report Type: 
  Country: None (occurrence: None)
  Receive Date: 20100505
  Receipt Date: 20100505
  Transmission Date: 20101027
  Serious: Yes (Hospitalization)
  Sender: FDA-Public Use
  Company Number: None

PATIENT
  Age: 56 Year
  Sex: Male
  Weight: 98.8842 kg

DRUGS (4)
  1. DULOXETINE HYDROCHLORIDE [Suspect]
     Indication: ALCOHOLISM
     Dosage: 20MG, 2X/DAY, ORALLY
     Route: 048
     Dates: start: 20091209, end: 20100301
  2. PREGABALIN [Suspect]
     Indication: ALCOHOLISM
     Dosage: 150 MG, 2X/DAY, ORALLY
     Route: 048
     Dates: start: 20091209, end: 20100301
  3. ASPIRIN [Concomitant]
  4. MULTI-VITAMIN [Concomitant]

REACTIONS (2)
  - ASTHMA [None]
  - PERFUME SENSITIVITY [None]
